APPROVED DRUG PRODUCT: GABAPENTIN
Active Ingredient: GABAPENTIN
Strength: 600MG
Dosage Form/Route: TABLET;ORAL
Application: A076120 | Product #001
Applicant: CHARTWELL RX SCIENCES LLC
Approved: Jan 27, 2006 | RLD: No | RS: No | Type: DISCN